FAERS Safety Report 9012783 (Version 6)
Quarter: 2014Q4

REPORT INFORMATION
  Report Type: Report from Study
  Country: DE (occurrence: DE)
  Receive Date: 20130114
  Receipt Date: 20141014
  Transmission Date: 20150529
  Serious: Yes (Hospitalization)
  Sender: FDA-Public Use
  Company Number: DE-UCBSA-074807

PATIENT
  Age: 50 Year
  Sex: Female
  Weight: 54 kg

DRUGS (18)
  1. CERTOLIZUMAB PEGOL RA [Suspect]
     Active Substance: CERTOLIZUMAB PEGOL
     Dosage: 200 MG, EV 2 WEEKS(QOW)
     Route: 058
     Dates: start: 20121205
  2. METHOTREXATE [Suspect]
     Active Substance: METHOTREXATE
     Dosage: DOSE: 10 MG QS
     Dates: start: 20120418
  3. IBUPROFEN. [Concomitant]
     Active Substance: IBUPROFEN
     Indication: RHEUMATOID ARTHRITIS
     Dosage: DOSE: 400 MG; AS NEEDED
     Route: 048
     Dates: start: 20100624
  4. FOLIC ACID. [Concomitant]
     Active Substance: FOLIC ACID
     Indication: DRUG TOLERANCE
     Dosage: DOSE: 5 MG QS
     Dates: start: 20001018
  5. CLEXANE [Concomitant]
     Active Substance: ENOXAPARIN SODIUM
     Dosage: 20 MG, ONCE DAILY (QD)
     Dates: start: 20130705, end: 20130705
  6. NOVAMINSULFONE [Concomitant]
     Indication: RHEUMATOID ARTHRITIS
     Dosage: 500 MG; AS NEEDED
     Route: 048
     Dates: start: 20120815
  7. TRIAMCINOLON [Concomitant]
     Indication: ARTHRITIS
     Dosage: DOSE: 40 MG ONCE I.A.
     Dates: start: 20120815, end: 20120815
  8. METHOTREXATE [Suspect]
     Active Substance: METHOTREXATE
     Indication: RHEUMATOID ARTHRITIS
     Dosage: DOSE: 5 MG QS
     Dates: start: 20001018, end: 20120229
  9. PREDNISOLONE. [Concomitant]
     Active Substance: PREDNISOLONE
     Indication: RHEUMATOID ARTHRITIS
     Dosage: DOSE: 5 MG DAILY
     Route: 048
     Dates: start: 20101018
  10. DICLOFENAC [Concomitant]
     Active Substance: DICLOFENAC
     Indication: RHEUMATOID ARTHRITIS
     Dosage: 75 MG, ONCE DAILY (QD)
     Route: 048
     Dates: start: 20120522
  11. CA2+ + VITAMINE D [Concomitant]
     Indication: OSTEOPOROSIS PROPHYLAXIS
     Dosage: DOSE: 1000/800 MG
     Dates: start: 20030725
  12. CERTOLIZUMAB PEGOL RA [Suspect]
     Active Substance: CERTOLIZUMAB PEGOL
     Indication: RHEUMATOID ARTHRITIS
     Dosage: 200 MG, EV 2 WEEKS(QOW)
     Route: 058
     Dates: start: 20120113, end: 20121101
  13. LODOTRA [Concomitant]
     Active Substance: PREDNISONE
     Indication: RHEUMATOID ARTHRITIS
     Dosage: 5 MG DAILY
     Route: 048
     Dates: start: 20111014
  14. ETANERCEPT [Concomitant]
     Active Substance: ETANERCEPT
     Dosage: UNKNOWN DOSE
     Dates: start: 201112, end: 201201
  15. PANTOPREZOL [Concomitant]
     Indication: PROPHYLAXIS
     Dosage: DOSE: 40 MG QOD
     Dates: start: 20080310
  16. METHOTREXATE [Suspect]
     Active Substance: METHOTREXATE
     Dosage: DOSE: 10 MG QS
     Dates: start: 20120301, end: 20130417
  17. MCP (METOCLOPRAMID) [Concomitant]
     Indication: DRUG TOLERANCE
     Dosage: DOSE: 4 MG QS
     Dates: start: 20111206
  18. CLEXANE [Concomitant]
     Active Substance: ENOXAPARIN SODIUM
     Indication: THROMBOSIS PROPHYLAXIS
     Dosage: 20 MG, ONCE DAILY (QD)
     Dates: start: 20121114, end: 201212

REACTIONS (2)
  - Synovitis [Recovered/Resolved]
  - Arthritis [Recovered/Resolved]

NARRATIVE: CASE EVENT DATE: 201209
